FAERS Safety Report 9117164 (Version 1)
Quarter: 2013Q1

REPORT INFORMATION
  Report Type: Spontaneous
  Country: CA (occurrence: CA)
  Receive Date: 20130208
  Receipt Date: 20130208
  Transmission Date: 20140127
  Serious: Yes (Hospitalization, Other)
  Sender: FDA-Public Use
  Company Number: CA-ABBOTT-13P-028-1045376-00

PATIENT
  Age: 10 None
  Sex: Female

DRUGS (3)
  1. BIAXIN [Suspect]
     Indication: PRODUCT USED FOR UNKNOWN INDICATION
     Dosage: 250MG/5 ML; 3.5ML BID FOR 10DAYS
     Route: 048
     Dates: start: 20060603
  2. BIAXIN [Suspect]
     Dosage: 4.2ML BID FOR 10DAYS
     Route: 048
     Dates: start: 20070604
  3. BIAXIN [Suspect]
     Dosage: 5.1ML BID 10DAYS
     Dates: start: 20080221

REACTIONS (32)
  - Osteomyelitis [Recovered/Resolved]
  - Anaemia [Recovered/Resolved]
  - Central venous catheterisation [Recovered/Resolved]
  - Pharyngitis [Recovered/Resolved]
  - Eczema [Recovered/Resolved]
  - Rash pruritic [Recovered/Resolved]
  - Abdominal pain [Recovered/Resolved]
  - Vomiting [Recovered/Resolved]
  - Rash [Recovered/Resolved]
  - Rash pruritic [Recovered/Resolved]
  - Rash [Recovered/Resolved]
  - Erythema [Recovered/Resolved]
  - Anxiety [Not Recovered/Not Resolved]
  - Pyrexia [Recovered/Resolved]
  - Tremor [Recovered/Resolved]
  - Headache [Recovered/Resolved]
  - Decreased appetite [Recovered/Resolved]
  - Nausea [Recovered/Resolved]
  - Diarrhoea [Recovered/Resolved]
  - Arthralgia [Recovered/Resolved]
  - Dental examination [Unknown]
  - Tonsillitis [Recovered/Resolved]
  - Eczema [Recovered/Resolved]
  - Oedema peripheral [Recovered/Resolved]
  - Erythema [Recovered/Resolved]
  - Insomnia [Not Recovered/Not Resolved]
  - Panic attack [Not Recovered/Not Resolved]
  - Scratch [Unknown]
  - Screaming [Not Recovered/Not Resolved]
  - Skin haemorrhage [Unknown]
  - Photophobia [Recovered/Resolved]
  - Inflammation [Recovered/Resolved]
